FAERS Safety Report 5417965-1 (Version None)
Quarter: 2007Q3

REPORT INFORMATION
  Report Type: 
  Country: None (occurrence: None)
  Receive Date: 20070817
  Receipt Date: 20070806
  Transmission Date: 20080115
  Serious: Yes (Hospitalization)
  Sender: FDA-Public Use
  Company Number: US-NOVOPROD-266295

PATIENT

DRUGS (2)
  1. LEVEMIR [Suspect]
     Indication: INSULIN-REQUIRING TYPE II DIABETES MELLITUS
     Dosage: 55 IU, QD AT H.S.
     Route: 058
     Dates: start: 20070601, end: 20070730
  2. NOVOLOG [Suspect]
     Indication: INSULIN-REQUIRING TYPE II DIABETES MELLITUS
     Dosage: 8 IU, TID BEFORE MEALS
     Route: 058
     Dates: start: 20070601, end: 20070730

REACTIONS (1)
  - INFECTED CYST [None]
